FAERS Safety Report 6446710-6 (Version None)
Quarter: 2009Q4

REPORT INFORMATION
  Report Type: 
  Country: None (occurrence: None)
  Receive Date: 20091119
  Receipt Date: 20091111
  Transmission Date: 20100525
  Serious: Yes (Disabling)
  Sender: FDA-Public Use
  Company Number: B0603315A

PATIENT
  Age: 22 Year
  Sex: Female

DRUGS (3)
  1. RELENZA [Suspect]
     Indication: DRUG USE FOR UNKNOWN INDICATION
     Route: 055
     Dates: start: 20091106, end: 20091110
  2. UNKNOWN DRUG [Concomitant]
  3. PARACETAMOL [Concomitant]

REACTIONS (1)
  - DIARRHOEA [None]
